FAERS Safety Report 7442900-4 (Version None)
Quarter: 2011Q2

REPORT INFORMATION
  Report Type: 
  Country: None (occurrence: None)
  Receive Date: 20110428
  Receipt Date: 20110415
  Transmission Date: 20111010
  Serious: Yes (Death, Hospitalization, Other)
  Sender: FDA-Public Use
  Company Number: PHEH2006US08860

PATIENT
  Sex: Male
  Weight: 90.702 kg

DRUGS (50)
  1. ARANESP [Concomitant]
     Indication: ANAEMIA
     Dosage: 300MG DAY 1 SC
     Route: 058
     Dates: start: 20060426
  2. NIFEREX (POLYSACCHARIDE-IRON COMPLEX) [Concomitant]
  3. NIFEDIPINE [Concomitant]
  4. HYDROCODONE [Concomitant]
  5. PHENERGAN ^WYETH-AYERST^ [Concomitant]
  6. AREDIA [Suspect]
     Dosage: 90MG MONTHLY
     Dates: start: 20060412, end: 20060724
  7. ZOMETA [Suspect]
     Indication: HYPERCALCAEMIA
     Dosage: 4MG Q MONTH
     Dates: start: 20030609, end: 20031001
  8. ZOMETA [Suspect]
     Dosage: 3 MG Q MONTH
     Dates: start: 20060103, end: 20060301
  9. NEURONTIN [Concomitant]
     Indication: NEUROPATHY PERIPHERAL
     Dosage: 200 MG, QHS
  10. MAGNESIUM OXIDE [Concomitant]
  11. PROTONIX [Concomitant]
  12. INSULIN [Concomitant]
  13. MIRALAX [Concomitant]
  14. MULTIPLE VITAMINS [Concomitant]
  15. REGLAN [Concomitant]
  16. SENOKOT                                 /UNK/ [Concomitant]
  17. NPH INSULIN [Concomitant]
  18. ZAROXOLYN [Concomitant]
  19. ANZEMET [Concomitant]
  20. HUMULIN R [Concomitant]
  21. DECADRON #1 [Concomitant]
     Indication: MULTIPLE MYELOMA
     Dosage: X 4 DAYS
     Dates: start: 20030530
  22. ATIVAN [Concomitant]
  23. PLAVIX [Concomitant]
  24. INSULIN ASPART [Concomitant]
  25. TEMAZEPAM [Concomitant]
  26. PERCOCET [Concomitant]
  27. THALIDOMIDE [Concomitant]
     Indication: MULTIPLE MYELOMA
     Dosage: 50 MG 2-4 TABS
     Route: 048
     Dates: start: 20030530
  28. NITROGLYCERIN [Concomitant]
  29. COUMADIN [Concomitant]
  30. RESTORIL [Concomitant]
  31. NIASPAN [Concomitant]
  32. FUROSEMIDE [Concomitant]
  33. VELCADE [Concomitant]
     Indication: MULTIPLE MYELOMA
     Dosage: 2.4MG DAYS 1,4,8, AND 11 MONTHLY
     Dates: start: 20030728
  34. POTASSIUM [Concomitant]
  35. OXYFAST [Concomitant]
  36. AMBIEN [Concomitant]
  37. VELCADE [Concomitant]
     Dosage: 2.4MG DAYS 1,4,8, AND 11 MONTHLY
     Dates: start: 20050401
  38. LASIX [Concomitant]
     Dates: start: 20030101
  39. OXYCODONE [Concomitant]
  40. LANTUS [Concomitant]
  41. COLACE [Concomitant]
  42. AREDIA [Suspect]
     Indication: HYPERCALCAEMIA
     Dosage: 90 MG, ONCE/SINGLE
     Dates: start: 20030509, end: 20030509
  43. ZOMETA [Suspect]
     Dosage: 4MG Q MONTH
     Dates: start: 20031202, end: 20051201
  44. IMDUR [Concomitant]
  45. LISINOPRIL [Concomitant]
  46. PROCRIT                            /00909301/ [Concomitant]
  47. PROCARDIA XL [Concomitant]
  48. ASPIRIN [Concomitant]
  49. ZOFRAN [Concomitant]
  50. METOPROLOL [Concomitant]

REACTIONS (90)
  - PRIMARY SEQUESTRUM [None]
  - PAIN [None]
  - DECUBITUS ULCER [None]
  - MYOCARDIAL ISCHAEMIA [None]
  - PULMONARY HYPERTENSION [None]
  - NOCTURIA [None]
  - CONSTIPATION [None]
  - DYSPNOEA EXERTIONAL [None]
  - PERIPHERAL VASCULAR DISORDER [None]
  - ERYTHEMA [None]
  - HERPES ZOSTER [None]
  - HYPERTENSION [None]
  - JOINT INJURY [None]
  - IRON DEFICIENCY ANAEMIA [None]
  - SEPTIC EMBOLUS [None]
  - ULCER [None]
  - ORAL CAVITY FISTULA [None]
  - PURULENCE [None]
  - MOUTH CYST [None]
  - DYSPHAGIA [None]
  - ARTERIOSCLEROSIS [None]
  - HYPERCALCAEMIA [None]
  - HEARING IMPAIRED [None]
  - INTERVERTEBRAL DISC PROTRUSION [None]
  - ABDOMINAL DISCOMFORT [None]
  - STAPHYLOCOCCAL BACTERAEMIA [None]
  - KIDNEY SMALL [None]
  - OSTEONECROSIS OF JAW [None]
  - ARTHRALGIA [None]
  - CATARACT [None]
  - NEUROPATHY PERIPHERAL [None]
  - AORTIC ARTERIOSCLEROSIS [None]
  - TENDERNESS [None]
  - HYPOTENSION [None]
  - POLLAKIURIA [None]
  - FALL [None]
  - PERONEAL NERVE PALSY [None]
  - INJURY [None]
  - HEADACHE [None]
  - PRESBYOPIA [None]
  - WEIGHT INCREASED [None]
  - HYPONATRAEMIA [None]
  - NAUSEA [None]
  - SPINAL OSTEOARTHRITIS [None]
  - DIZZINESS [None]
  - LIMB DISCOMFORT [None]
  - DEATH [None]
  - ENDOCARDITIS [None]
  - ANGINA PECTORIS [None]
  - ORAL DISCOMFORT [None]
  - DIARRHOEA [None]
  - CARDIAC FAILURE CONGESTIVE [None]
  - DIABETIC RETINOPATHY [None]
  - CORONARY ARTERY DISEASE [None]
  - ANAEMIA [None]
  - TYPE 2 DIABETES MELLITUS [None]
  - PNEUMONIA [None]
  - ABDOMINAL PAIN [None]
  - BONE DISORDER [None]
  - JAW DISORDER [None]
  - GINGIVAL INFECTION [None]
  - MUSCULAR WEAKNESS [None]
  - AORTIC ANEURYSM [None]
  - OEDEMA PERIPHERAL [None]
  - DIVERTICULITIS [None]
  - NEOPLASM MALIGNANT [None]
  - OSTEOPENIA [None]
  - GINGIVAL PAIN [None]
  - MULTIPLE MYELOMA [None]
  - BACK PAIN [None]
  - DIVERTICULUM INTESTINAL [None]
  - VITREOUS FLOATERS [None]
  - RENAL FAILURE CHRONIC [None]
  - DYSPEPSIA [None]
  - ENDOCARDITIS STAPHYLOCOCCAL [None]
  - HYPERLIPIDAEMIA [None]
  - MYOCARDIAL INFARCTION [None]
  - INTERVERTEBRAL DISC DEGENERATION [None]
  - RENAL ARTERY STENOSIS [None]
  - CELLULITIS [None]
  - RESTLESSNESS [None]
  - INTESTINAL ISCHAEMIA [None]
  - ANXIETY [None]
  - BLOOD CREATININE INCREASED [None]
  - POSTERIOR CAPSULE OPACIFICATION [None]
  - FATIGUE [None]
  - SKIN ULCER [None]
  - INTERMITTENT CLAUDICATION [None]
  - DYSURIA [None]
  - BLOOD GLUCOSE DECREASED [None]
